FAERS Safety Report 7477839-1 (Version None)
Quarter: 2011Q2

REPORT INFORMATION
  Report Type: 
  Country: None (occurrence: None)
  Receive Date: 20110513
  Receipt Date: 20100928
  Transmission Date: 20111010
  Serious: No
  Sender: FDA-Public Use
  Company Number: US-ABBOTT-10P-163-0675376-00

PATIENT
  Sex: Male
  Weight: 85.806 kg

DRUGS (7)
  1. GENGRAF [Suspect]
     Indication: APLASTIC ANAEMIA
     Dates: start: 20090201
  2. GENGRAF [Suspect]
     Indication: APLASTIC ANAEMIA
     Dates: start: 20090201
  3. DAPSONE [Concomitant]
     Indication: APLASTIC ANAEMIA
  4. LISINOPRIL [Concomitant]
     Indication: HYPERTENSION
  5. ACYCLOVIR [Concomitant]
     Indication: APLASTIC ANAEMIA
  6. LEVOTHYROXINE SODIUM [Concomitant]
     Indication: THYROID DISORDER
  7. UNKNOWN BLOOD PRESSURE MEDICATION [Concomitant]
     Indication: HYPERTENSION

REACTIONS (1)
  - PRODUCT QUALITY ISSUE [None]
